FAERS Safety Report 8256015-9 (Version None)
Quarter: 2012Q1

REPORT INFORMATION
  Report Type: 
  Country: None (occurrence: None)
  Receive Date: 20120322
  Receipt Date: 20120104
  Transmission Date: 20120608
  Serious: Yes (Hospitalization)
  Sender: FDA-Public Use
  Company Number: UTC-014223

PATIENT
  Age: 62 Year
  Sex: Male
  Weight: 88.2 kg

DRUGS (5)
  1. TYVASO [Suspect]
  2. TYVASO [Suspect]
     Indication: PULMONARY ARTERIAL HYPERTENSION
     Dosage: 18-54 MICROGRAMS (4 IN 1 D), INHALATION
     Route: 055
     Dates: start: 20110620
  3. TRACLEER [Concomitant]
  4. OXYGEN (OXYGEN) [Concomitant]
  5. PLAVIX [Concomitant]

REACTIONS (1)
  - PNEUMONIA [None]
